FAERS Safety Report 12546211 (Version 4)
Quarter: 2016Q3

REPORT INFORMATION
  Report Type: Spontaneous
  Country: US (occurrence: US)
  Receive Date: 20160711
  Receipt Date: 20160715
  Transmission Date: 20161109
  Serious: Yes (Other)
  Sender: FDA-Public Use
  Company Number: US-CELGENEUS-USA-2016070118

PATIENT
  Sex: Male
  Weight: 95.34 kg

DRUGS (3)
  1. OTEZLA [Suspect]
     Active Substance: APREMILAST
     Indication: PRODUCT USED FOR UNKNOWN INDICATION
     Dosage: 60 MILLIGRAM
     Route: 048
  2. CLOMID [Concomitant]
     Active Substance: CLOMIPHENE CITRATE
     Indication: PRODUCT USED FOR UNKNOWN INDICATION
     Route: 065
  3. FINASTERIDE. [Concomitant]
     Active Substance: FINASTERIDE
     Indication: PRODUCT USED FOR UNKNOWN INDICATION
     Route: 065

REACTIONS (10)
  - Alopecia [Unknown]
  - Acne [Unknown]
  - Blister [Unknown]
  - Varicose vein [Unknown]
  - Depression [Unknown]
  - Insomnia [Unknown]
  - Headache [Unknown]
  - Pollakiuria [Unknown]
  - Gout [Unknown]
  - Urine flow decreased [Unknown]
